FAERS Safety Report 11871851 (Version 3)
Quarter: 2016Q1

REPORT INFORMATION
  Report Type: Spontaneous
  Country: US (occurrence: US)
  Receive Date: 20151228
  Receipt Date: 20160318
  Transmission Date: 20160526
  Serious: No
  Sender: FDA-Public Use
  Company Number: US-GLAXOSMITHKLINE-US2015180893

PATIENT
  Age: 61 Year
  Sex: Female

DRUGS (1)
  1. VENTOLIN HFA [Suspect]
     Active Substance: ALBUTEROL SULFATE
     Indication: ASTHMA
     Dosage: UNK
     Route: 055

REACTIONS (7)
  - Intentional product misuse [Unknown]
  - Drug ineffective [Unknown]
  - Product quality issue [Unknown]
  - Dyspnoea [Not Recovered/Not Resolved]
  - Asthma [Recovering/Resolving]
  - Condition aggravated [Recovering/Resolving]
  - Device use error [Recovered/Resolved]

NARRATIVE: CASE EVENT DATE: 20151222
